FAERS Safety Report 4888278-1 (Version None)
Quarter: 2006Q1

REPORT INFORMATION
  Report Type: 
  Country: None (occurrence: None)
  Receive Date: 20060123
  Receipt Date: 20060118
  Transmission Date: 20060701
  Serious: Yes (Death, Other)
  Sender: FDA-Public Use
  Company Number: JP-SANOFI-SYNTHELABO-F01200600171

PATIENT
  Sex: Male
  Weight: 52 kg

DRUGS (9)
  1. OXALIPLATIN [Suspect]
     Indication: RECTAL CANCER
     Route: 042
     Dates: start: 20050712, end: 20050712
  2. OXALIPLATIN [Suspect]
     Route: 042
     Dates: start: 20051206, end: 20051206
  3. FLUOROURACIL [Suspect]
     Dosage: 600 MG (402.7 MG/M2) IV BOLUS THEN 900 MG (604 MG/M2) CONTINUOUS INFUSION DAYS 1+2, Q2W
     Route: 042
     Dates: start: 20050712, end: 20050713
  4. FLUOROURACIL [Suspect]
     Dosage: 450 MG (302 MG/M2) IV BOLUS THEN 750 MG (503.4 MG/M2) CONTINUOUS INFUSION DAYS 1+2, Q2W
     Route: 042
     Dates: start: 20051206, end: 20051207
  5. CALCIUM LEVOFOLINATE [Suspect]
     Route: 042
     Dates: start: 20050712, end: 20050713
  6. CALCIUM LEVOFOLINATE [Suspect]
     Route: 042
     Dates: start: 20051206, end: 20051207
  7. FAMOTIDINE [Concomitant]
     Route: 042
     Dates: start: 20051219, end: 20060112
  8. PROPOFOL [Concomitant]
     Route: 042
     Dates: start: 20051219, end: 20060112
  9. MORPHINE [Concomitant]
     Route: 042
     Dates: start: 20051225, end: 20051230

REACTIONS (17)
  - AGEUSIA [None]
  - ALANINE AMINOTRANSFERASE INCREASED [None]
  - ANOREXIA [None]
  - ASPARTATE AMINOTRANSFERASE INCREASED [None]
  - CHEILITIS [None]
  - DIARRHOEA [None]
  - DYSPNOEA [None]
  - GENERAL PHYSICAL HEALTH DETERIORATION [None]
  - INTERSTITIAL LUNG DISEASE [None]
  - LEUKOPENIA [None]
  - NAUSEA [None]
  - NEUROPATHY PERIPHERAL [None]
  - NEUTROPENIA [None]
  - PYREXIA [None]
  - SKIN REACTION [None]
  - STOMATITIS [None]
  - THROMBOCYTOPENIA [None]
